FAERS Safety Report 8960871 (Version 1)
Quarter: 2012Q4

REPORT INFORMATION
  Report Type: Spontaneous
  Country: US (occurrence: None)
  Receive Date: 20121211
  Receipt Date: 20121211
  Transmission Date: 20130627
  Serious: Yes (Other)
  Sender: FDA-Public Use
  Company Number: None

PATIENT
  Age: 61 Year
  Sex: Male

DRUGS (1)
  1. ENBREL [Suspect]
     Dosage: SQ injection
     Dates: start: 20120813, end: 20121119

REACTIONS (6)
  - Swelling [None]
  - Muscular weakness [None]
  - Contusion [None]
  - Rash macular [None]
  - Contusion [None]
  - Rash generalised [None]
